FAERS Safety Report 15057677 (Version 1)
Quarter: 2018Q2

REPORT INFORMATION
  Report Type: Report from Study
  Country: PT (occurrence: PT)
  Receive Date: 20180625
  Receipt Date: 20180625
  Transmission Date: 20180711
  Serious: Yes (Other)
  Sender: FDA-Public Use
  Company Number: PT-TEVA-2018-PT-912199

PATIENT
  Age: 77 Year
  Sex: Male

DRUGS (3)
  1. GLICLAZIDE [Suspect]
     Active Substance: GLICLAZIDE
     Route: 065
  2. GLIMEPIRIDE. [Suspect]
     Active Substance: GLIMEPIRIDE
     Route: 065
  3. LANTUS [Suspect]
     Active Substance: INSULIN GLARGINE
     Route: 051

REACTIONS (1)
  - Hypoglycaemia [Recovered/Resolved]

NARRATIVE: CASE EVENT DATE: 2017
